FAERS Safety Report 17095562 (Version 1)
Quarter: 2019Q4

REPORT INFORMATION
  Report Type: Spontaneous
  Country: US (occurrence: US)
  Receive Date: 20191104
  Receipt Date: 20191104
  Transmission Date: 20200122
  Serious: Yes (Death)
  Sender: FDA-Public Use
  Company Number: None

PATIENT
  Age: 9 Year
  Sex: Male

DRUGS (2)
  1. CYCLOPHOSPHAMIDE 25MG [Suspect]
     Active Substance: CYCLOPHOSPHAMIDE
     Indication: ADRENAL GLAND CANCER
     Route: 048
  2. NO DRUG NAME [Concomitant]

REACTIONS (1)
  - Death [None]
